FAERS Safety Report 5265936-0 (Version None)
Quarter: 2007Q1

REPORT INFORMATION
  Report Type: 
  Country: None (occurrence: None)
  Receive Date: 20070315
  Receipt Date: 20070301
  Transmission Date: 20070707
  Serious: Yes (Other)
  Sender: FDA-Public Use
  Company Number: PHBS2007ZA03915

PATIENT
  Age: 65 Year
  Sex: Female

DRUGS (5)
  1. LIORESAL [Suspect]
     Dosage: 25 MG, QHS
     Route: 048
  2. VALSARTAN AND HYDROCHLOROTHIAZIDE [Concomitant]
  3. EVISTA [Concomitant]
  4. NSAID'S [Concomitant]
  5. MULTI-VITAMINS [Concomitant]

REACTIONS (4)
  - CEREBROVASCULAR ACCIDENT [None]
  - HYPOAESTHESIA FACIAL [None]
  - PARAESTHESIA [None]
  - SENSORY DISTURBANCE [None]
